FAERS Safety Report 4478449-0 (Version None)
Quarter: 2004Q4

REPORT INFORMATION
  Report Type: 
  Country: None (occurrence: None)
  Receive Date: 20041018
  Receipt Date: 20041018
  Transmission Date: 20050328
  Serious: Yes (Death)
  Sender: FDA-Public Use
  Company Number: None

PATIENT
  Age: 32 Year
  Sex: Male
  Weight: 86.1834 kg

DRUGS (1)
  1. EFFEXOR XR [Suspect]
     Dosage: 1 PER DAY
     Dates: start: 20031009, end: 20031118

REACTIONS (1)
  - COMPLETED SUICIDE [None]
